FAERS Safety Report 8131947-0 (Version None)
Quarter: 2012Q1

REPORT INFORMATION
  Report Type: 
  Country: None (occurrence: None)
  Receive Date: 20120207
  Receipt Date: 20120123
  Transmission Date: 20120608
  Serious: Yes (Hospitalization)
  Sender: FDA-Public Use
  Company Number: UTC-014909

PATIENT
  Age: 78 Year
  Sex: Male

DRUGS (3)
  1. DIURETICS (DIURETICS) [Concomitant]
  2. TYVASO [Suspect]
     Indication: PULMONARY ARTERIAL HYPERTENSION
     Dosage: 54-72 MICROGRAMS (4 IN 1 D), INHALATION
     Route: 055
     Dates: start: 20110615
  3. TRACLEER [Suspect]

REACTIONS (4)
  - LOSS OF CONSCIOUSNESS [None]
  - ASTHENIA [None]
  - DYSPNOEA [None]
  - ANAEMIA [None]
